FAERS Safety Report 11512712 (Version 1)
Quarter: 2015Q3

REPORT INFORMATION
  Report Type: Spontaneous
  Country: US (occurrence: US)
  Receive Date: 20150903
  Receipt Date: 20150903
  Transmission Date: 20151125
  Serious: No
  Sender: FDA-Public Use
  Company Number: US-ELI_LILLY_AND_COMPANY-US201003006433

PATIENT
  Age: 66 Year
  Sex: Male

DRUGS (5)
  1. METFORMIN [Concomitant]
     Active Substance: METFORMIN HYDROCHLORIDE
     Dosage: 1000 MG, 2/D
  2. BYETTA [Concomitant]
     Active Substance: EXENATIDE
     Dosage: 10 U, 2/D
  3. HUMALOG MIX75/25 [Suspect]
     Active Substance: INSULIN LISPRO
     Indication: DIABETES MELLITUS
     Dosage: 40 U, EACH EVENING
     Dates: start: 20100312
  4. GLIPIZIDE. [Concomitant]
     Active Substance: GLIPIZIDE
     Dosage: 10 MG, 2/D
  5. NOVOLOG [Concomitant]
     Active Substance: INSULIN ASPART
     Dates: end: 201003

REACTIONS (11)
  - Injection site pain [Unknown]
  - Insomnia [Unknown]
  - Fear [Unknown]
  - Pruritus generalised [Recovered/Resolved]
  - Feeling hot [Unknown]
  - Injection site swelling [Unknown]
  - Swelling [Unknown]
  - Injection site pruritus [Unknown]
  - Pain [Unknown]
  - Injection site discolouration [Unknown]
  - Skin disorder [Unknown]

NARRATIVE: CASE EVENT DATE: 201003
